FAERS Safety Report 21211351 (Version 1)
Quarter: 2022Q3

REPORT INFORMATION
  Report Type: Spontaneous
  Country: US (occurrence: None)
  Receive Date: 20220812
  Receipt Date: 20220812
  Transmission Date: 20221027
  Serious: Yes (Hospitalization)
  Sender: FDA-Public Use
  Company Number: None

PATIENT
  Age: 82 Year
  Sex: Male

DRUGS (2)
  1. APIXABAN [Suspect]
     Active Substance: APIXABAN
     Indication: Atrial fibrillation
     Dates: start: 20200917, end: 20220101
  2. APIXABAN [Suspect]
     Active Substance: APIXABAN
     Indication: Cardiovascular event prophylaxis
     Dates: start: 19950101, end: 20220224

REACTIONS (6)
  - Asthenia [None]
  - Bradycardia [None]
  - Gastrointestinal haemorrhage [None]
  - Pericardial effusion [None]
  - Constipation [None]
  - Acute kidney injury [None]

NARRATIVE: CASE EVENT DATE: 20220224
